FAERS Safety Report 8070868-9 (Version None)
Quarter: 2012Q1

REPORT INFORMATION
  Report Type: 
  Country: None (occurrence: None)
  Receive Date: 20120125
  Receipt Date: 20120118
  Transmission Date: 20120608
  Serious: Yes (Other)
  Sender: FDA-Public Use
  Company Number: PHHY2012GB004350

PATIENT
  Age: 63 Year
  Sex: Male

DRUGS (13)
  1. RAMIPRIL [Suspect]
     Dosage: 7.5 MG, DAILY
     Route: 048
  2. LOPRAZOLAM [Concomitant]
  3. SIMVASTATIN [Concomitant]
  4. FUROSEMIDE [Concomitant]
  5. WARFARIN SODIUM [Concomitant]
  6. DIGOXIN [Concomitant]
  7. PREDNISOLONE [Concomitant]
  8. TRAMADOL HCL [Concomitant]
  9. ACETAMINOPHEN AND CODEINE PHOSPHATE [Concomitant]
  10. ALLOPURINOL [Concomitant]
  11. COLCHICINE [Concomitant]
  12. BISOPROLOL [Concomitant]
  13. LANSOPRAZOLE [Concomitant]

REACTIONS (1)
  - GOUT [None]
